FAERS Safety Report 22292814 (Version 4)
Quarter: 2024Q3

REPORT INFORMATION
  Report Type: Spontaneous
  Country: CA (occurrence: CA)
  Receive Date: 20230508
  Receipt Date: 20240715
  Transmission Date: 20241017
  Serious: Yes (Death, Life-Threatening, Other)
  Sender: CSL BEHRING
  Company Number: CA-BEH-2023158080

PATIENT
  Age: 65 Year
  Sex: Female
  Weight: 78 kg

DRUGS (5)
  1. PRIVIGEN [Suspect]
     Active Substance: HUMAN IMMUNOGLOBULIN G
     Indication: Polymyositis
     Dosage: 200 MILLILITER, TOT
     Route: 042
     Dates: start: 20220707, end: 20220707
  2. PRIVIGEN [Suspect]
     Active Substance: HUMAN IMMUNOGLOBULIN G
     Dosage: 25 MILLILITER, TOT
     Route: 042
     Dates: start: 20220707, end: 20220707
  3. PIPERACILLIN SODIUM\TAZOBACTAM SODIUM [Suspect]
     Active Substance: PIPERACILLIN SODIUM\TAZOBACTAM SODIUM
     Dosage: 100 MILLILITER
     Dates: start: 20220707
  4. BENADRYL [Concomitant]
     Active Substance: DIPHENHYDRAMINE HYDROCHLORIDE
     Indication: Premedication
     Dosage: 25 MILLIGRAM
     Route: 042
  5. LASIX [Concomitant]
     Active Substance: FUROSEMIDE
     Dosage: 240 MILLIGRAM
     Route: 042
     Dates: start: 20220707

REACTIONS (22)
  - Acute pulmonary oedema [Fatal]
  - Intestinal ischaemia [Fatal]
  - Arteriosclerosis [Fatal]
  - Chills [Fatal]
  - Hypoxia [Fatal]
  - Dyspnoea [Fatal]
  - Hypertension [Fatal]
  - Wheezing [Fatal]
  - Tachycardia [Fatal]
  - Asthenia [Fatal]
  - Cyanosis [Fatal]
  - Rhonchi [Fatal]
  - Crepitations [Fatal]
  - Blood pressure increased [Unknown]
  - Respiratory rate increased [Unknown]
  - Heart rate increased [Unknown]
  - Off label use [Unknown]
  - Acute pulmonary oedema [Fatal]
  - Arteriosclerosis coronary artery [Fatal]
  - Respiratory rate decreased [Fatal]
  - Tachypnoea [Fatal]
  - Tenosynovitis [Fatal]

NARRATIVE: CASE EVENT DATE: 20220707
